FAERS Safety Report 6103762-0 (Version None)
Quarter: 2009Q1

REPORT INFORMATION
  Report Type: 
  Country: None (occurrence: None)
  Receive Date: 20090227
  Receipt Date: 20080702
  Transmission Date: 20090719
  Serious: Yes (Other)
  Sender: FDA-Public Use
  Company Number: 485881

PATIENT
  Age: 21 Year
  Sex: Male
  Weight: 86.2 kg

DRUGS (1)
  1. ACCUTANE [Suspect]
     Indication: ACNE
     Dosage: ORAL
     Route: 048
     Dates: start: 19991230, end: 20000414

REACTIONS (5)
  - COLITIS [None]
  - COLITIS ULCERATIVE [None]
  - INFLAMMATORY BOWEL DISEASE [None]
  - PAIN [None]
  - RASH [None]
